FAERS Safety Report 25523908 (Version 1)
Quarter: 2025Q3

REPORT INFORMATION
  Report Type: Spontaneous
  Country: CA (occurrence: CA)
  Receive Date: 20250707
  Receipt Date: 20250707
  Transmission Date: 20251020
  Serious: Yes (Hospitalization)
  Sender: SANDOZ
  Company Number: CA-SANDOZ-SDZ2025CA047228

PATIENT
  Sex: Female

DRUGS (1)
  1. JUBBONTI [Suspect]
     Active Substance: DENOSUMAB-BBDZ
     Indication: Product used for unknown indication
     Route: 065

REACTIONS (2)
  - Hospitalisation [Unknown]
  - Circumstance or information capable of leading to medication error [Unknown]
